FAERS Safety Report 9887769 (Version 1)
Quarter: 2014Q1

REPORT INFORMATION
  Report Type: Spontaneous
  Country: FR (occurrence: FR)
  Receive Date: 20140211
  Receipt Date: 20140211
  Transmission Date: 20141002
  Serious: Yes (Hospitalization)
  Sender: FDA-Public Use
  Company Number: PHHY2014FR015866

PATIENT
  Age: 80 Year
  Sex: Female
  Weight: 60 kg

DRUGS (3)
  1. TASIGNA [Suspect]
     Dosage: 600 MG, QD
     Route: 048
     Dates: start: 201306, end: 20140106
  2. PREVENAR [Concomitant]
     Indication: PROPHYLAXIS
     Dates: start: 20131206
  3. FLU [Concomitant]
     Indication: PROPHYLAXIS
     Dates: start: 20131206

REACTIONS (2)
  - Supraventricular extrasystoles [Not Recovered/Not Resolved]
  - Electrocardiogram QT prolonged [Not Recovered/Not Resolved]
